FAERS Safety Report 13030060 (Version 3)
Quarter: 2017Q4

REPORT INFORMATION
  Report Type: Spontaneous
  Country: CN (occurrence: CN)
  Receive Date: 20161215
  Receipt Date: 20171109
  Transmission Date: 20180320
  Serious: Yes (Hospitalization, Other)
  Sender: FDA-Public Use
  Company Number: CN-SUN PHARMACEUTICAL INDUSTRIES LTD-2016R1-129605

PATIENT
  Age: 61 Year
  Sex: Male

DRUGS (2)
  1. METHIMAZOLE. [Suspect]
     Active Substance: METHIMAZOLE
     Indication: HYPERTHYROIDISM
     Dosage: 10 MG, BID
     Route: 065
  2. VALSARTAN. [Suspect]
     Active Substance: VALSARTAN
     Indication: HYPERTENSION
     Dosage: 80 MG, QD
     Route: 065

REACTIONS (4)
  - Cholestatic liver injury [Recovering/Resolving]
  - Drug hypersensitivity [Unknown]
  - Tubulointerstitial nephritis [Recovered/Resolved]
  - Acute kidney injury [Recovering/Resolving]
